FAERS Safety Report 6041145-2 (Version None)
Quarter: 2009Q1

REPORT INFORMATION
  Report Type: 
  Country: None (occurrence: None)
  Receive Date: 20090116
  Receipt Date: 20080904
  Transmission Date: 20090719
  Serious: Yes (Hospitalization)
  Sender: FDA-Public Use
  Company Number: US-BRISTOL-MYERS SQUIBB COMPANY-14324735

PATIENT

DRUGS (1)
  1. ABILIFY [Suspect]
     Dosage: STARTED AS 2 MG FOR 3 DAYS.

REACTIONS (2)
  - DYSTONIA [None]
  - RESPIRATORY DISTRESS [None]
